FAERS Safety Report 7357499-0 (Version None)
Quarter: 2011Q1

REPORT INFORMATION
  Report Type: 
  Country: None (occurrence: None)
  Receive Date: 20110309
  Receipt Date: 20101208
  Transmission Date: 20110831
  Serious: Yes (Hospitalization)
  Sender: FDA-Public Use
  Company Number: 2010SE58693

PATIENT
  Age: 70 Year
  Sex: Female

DRUGS (3)
  1. COTRIM [Suspect]
     Dosage: 9 A/DAY
     Dates: start: 20101203, end: 20101207
  2. FOSCAVIR [Suspect]
     Dosage: INTRAVENOUS (NOT OTHERWISE SPECIFIED)
     Dates: start: 20101203, end: 20101207
  3. FOSCAVIR [Suspect]
     Dosage: INTRAVENOUS (NOT OTHERWISE SPECIFIED)
     Dates: end: 20101207

REACTIONS (1)
  - HEPATITIS [None]
